FAERS Safety Report 17973335 (Version 2)
Quarter: 2020Q3

REPORT INFORMATION
  Report Type: Report from Study
  Country: US (occurrence: US)
  Receive Date: 20200702
  Receipt Date: 20200706
  Transmission Date: 20201103
  Serious: Yes (Congenital Anomaly)
  Sender: FDA-Public Use
  Company Number: NVSC2020US185899

PATIENT
  Age: 3 Month
  Sex: Male
  Weight: 3.23 kg

DRUGS (2)
  1. GILENYA [Suspect]
     Active Substance: FINGOLIMOD HYDROCHLORIDE
     Dosage: MATERNAL DOSE: 0.5 MG, QD
     Route: 064
     Dates: start: 20200106
  2. GILENYA [Suspect]
     Active Substance: FINGOLIMOD HYDROCHLORIDE
     Indication: FOETAL EXPOSURE DURING PREGNANCY
     Dosage: MATERNAL DOSE: 0.5 MG, QD
     Route: 064
     Dates: start: 201506, end: 20190423

REACTIONS (2)
  - Maternal exposure during pregnancy [Unknown]
  - Brachycephaly [Unknown]

NARRATIVE: CASE EVENT DATE: 20200406
